FAERS Safety Report 21376858 (Version 3)
Quarter: 2022Q4

REPORT INFORMATION
  Report Type: Report from Study
  Country: US (occurrence: US)
  Receive Date: 20220926
  Receipt Date: 20221223
  Transmission Date: 20230113
  Serious: Yes (Other)
  Sender: FDA-Public Use
  Company Number: US-ABBVIE-4131089

PATIENT
  Sex: Female

DRUGS (2)
  1. IMBRUVICA [Suspect]
     Active Substance: IBRUTINIB
     Indication: Chronic lymphocytic leukaemia
     Route: 048
     Dates: start: 20220902
  2. IMBRUVICA [Suspect]
     Active Substance: IBRUTINIB
     Indication: Chronic lymphocytic leukaemia
     Route: 048
     Dates: start: 202209, end: 202212

REACTIONS (13)
  - Malignant splenic neoplasm [Unknown]
  - Fluid retention [Unknown]
  - Dyspnoea [Unknown]
  - Oedema [Unknown]
  - Splenomegaly [Unknown]
  - Adverse drug reaction [Unknown]
  - Abdominal discomfort [Unknown]
  - Peripheral swelling [Unknown]
  - Contusion [Unknown]
  - Chest discomfort [Unknown]
  - Joint range of motion decreased [Unknown]
  - Joint swelling [Unknown]
  - Hypophagia [Unknown]
